FAERS Safety Report 10008934 (Version 2)
Quarter: 2014Q1

REPORT INFORMATION
  Report Type: Spontaneous
  Country: US (occurrence: US)
  Receive Date: 20140313
  Receipt Date: 20140313
  Transmission Date: 20141002
  Serious: No
  Sender: FDA-Public Use
  Company Number: US-INCYTE CORPORATION-2012IN000580

PATIENT
  Age: 64 Year
  Sex: Male
  Weight: 73.92 kg

DRUGS (15)
  1. JAKAFI [Suspect]
     Indication: MYELOFIBROSIS
     Dosage: 15 MG, BID
     Route: 048
     Dates: start: 20120222, end: 20120306
  2. JAKAFI [Suspect]
     Dosage: 5 MG, BID
     Route: 048
     Dates: start: 20120307, end: 20120313
  3. JAKAFI [Suspect]
     Dosage: 5 MG, QD
     Route: 048
     Dates: start: 20120314, end: 20120320
  4. JAKAFI [Suspect]
     Dosage: 5 MG, QOD
     Route: 048
     Dates: start: 20120321, end: 20120403
  5. JAKAFI [Suspect]
     Dosage: 5 MG, QD
     Route: 048
     Dates: start: 20120404, end: 20120417
  6. JAKAFI [Suspect]
     Dosage: 5 MG, EVERY 16 HOURS
     Route: 048
     Dates: start: 20120418, end: 20120424
  7. JAKAFI [Suspect]
     Dosage: 5 MG, BID
     Route: 048
     Dates: start: 20120425, end: 20120430
  8. JAKAFI [Suspect]
     Dosage: 10 MG IN THE A.M.; 5 MG IN THE EVENING
     Route: 048
     Dates: start: 20120501
  9. ACETAMINOPHEN [Concomitant]
     Dosage: UNK, PRN
     Route: 048
  10. ALLOPURINOL [Concomitant]
     Dosage: 100 MG, QD
  11. XANAX [Concomitant]
     Dosage: 0.5 MG, AT BEDTIME, AS NEEDED
  12. BENADRYL [Concomitant]
     Dosage: 25 MG, AT BEDTIME AS NEEDED (INSTEAD OF XANAX)
     Route: 048
  13. COLACE [Concomitant]
     Dosage: 100 MG, QD
  14. ASPIRIN [Concomitant]
     Dosage: 81 MG, QD
  15. ACIPHEX [Concomitant]
     Dosage: 81 MG, QD, PRN

REACTIONS (7)
  - Blood creatinine increased [Not Recovered/Not Resolved]
  - Fatigue [Unknown]
  - Haemoglobin decreased [Not Recovered/Not Resolved]
  - Haematocrit decreased [Not Recovered/Not Resolved]
  - Red blood cell count decreased [Recovered/Resolved]
  - Decreased appetite [Unknown]
  - Blast cell count increased [Not Recovered/Not Resolved]
